FAERS Safety Report 6108115-7 (Version None)
Quarter: 2009Q1

REPORT INFORMATION
  Report Type: 
  Country: None (occurrence: None)
  Receive Date: 20090309
  Receipt Date: 20090305
  Transmission Date: 20090719
  Serious: Yes (Hospitalization)
  Sender: FDA-Public Use
  Company Number: ES-SANOFI-SYNTHELABO-F01200600808

PATIENT
  Sex: Male

DRUGS (8)
  1. NEOBRUFEN [Concomitant]
     Dosage: UNK
  2. ACUPREL [Concomitant]
     Dosage: UNK
  3. PLAVIX [Concomitant]
     Dosage: UNK
  4. LEUCOVORIN CALCIUM [Suspect]
     Route: 041
     Dates: start: 20050906, end: 20050907
  5. FLUOROURACIL [Suspect]
     Dosage: 800 MG BOLUS FOLLOWED BY 1200 MG INFUSION
     Route: 042
     Dates: start: 20050906, end: 20050907
  6. OXALIPLATIN [Suspect]
     Indication: COLON CANCER
     Route: 041
     Dates: start: 20050906, end: 20050906
  7. BEVACIZUMAB [Suspect]
     Route: 041
     Dates: start: 20051121, end: 20051121
  8. OMEPRAZOLE [Concomitant]
     Dosage: UNK

REACTIONS (1)
  - TRANSIENT ISCHAEMIC ATTACK [None]
